FAERS Safety Report 20852174 (Version 1)
Quarter: 2022Q2

REPORT INFORMATION
  Report Type: Spontaneous
  Country: US (occurrence: US)
  Receive Date: 20220520
  Receipt Date: 20220520
  Transmission Date: 20220720
  Serious: No
  Sender: FDA-Public Use
  Company Number: US-BIOCON-BCN-2022-000285

PATIENT
  Age: 70 Year
  Sex: Female
  Weight: 83.082 kg

DRUGS (1)
  1. EVEROLIMUS [Suspect]
     Active Substance: EVEROLIMUS
     Indication: Product used for unknown indication
     Route: 048
     Dates: start: 20220412

REACTIONS (2)
  - Mouth swelling [Recovered/Resolved]
  - Accidental exposure to product packaging [Unknown]

NARRATIVE: CASE EVENT DATE: 20220412
